FAERS Safety Report 5751362-4 (Version None)
Quarter: 2008Q2

REPORT INFORMATION
  Report Type: 
  Country: None (occurrence: None)
  Receive Date: 20080528
  Receipt Date: 20080519
  Transmission Date: 20081010
  Serious: Yes (Hospitalization)
  Sender: FDA-Public Use
  Company Number: DK-AMGEN-US274141

PATIENT
  Sex: Male
  Weight: 71.4 kg

DRUGS (5)
  1. ENBREL [Suspect]
     Indication: ANKYLOSING SPONDYLITIS
     Dosage: UNKNOWN
     Route: 058
     Dates: start: 20050811, end: 20051118
  2. HUMIRA [Suspect]
     Indication: ANKYLOSING SPONDYLITIS
     Dosage: UNKNOWN
     Route: 065
     Dates: start: 20051128, end: 20060224
  3. REMICADE [Suspect]
     Indication: ANKYLOSING SPONDYLITIS
     Dosage: 450 MG, DOSE FREQUENCY UNKNOWN
     Route: 042
     Dates: start: 20060224, end: 20080226
  4. TRAMADOL HCL [Concomitant]
  5. METHOTREXATE [Concomitant]
     Dosage: UNKNOWN
     Route: 048
     Dates: start: 20050715

REACTIONS (2)
  - HEPATIC ENZYME ABNORMAL [None]
  - PULMONARY TUBERCULOSIS [None]
